FAERS Safety Report 8812520 (Version 1)
Quarter: 2012Q4

REPORT INFORMATION
  Report Type: 
  Country: US (occurrence: US)
  Receive Date: 20120927
  Receipt Date: 20120927
  Transmission Date: 20130627
  Serious: No
  Sender: FDA-Public Use
  Company Number: US-ASTRAZENECA-2012SE72090

PATIENT
  Age: 44 Year
  Sex: Female

DRUGS (10)
  1. FELODIPINE [Suspect]
     Route: 048
  2. SEROQUEL [Suspect]
     Route: 048
  3. TRAZODONE [Concomitant]
  4. HYDROCODONE WITH APAP [Concomitant]
  5. COLACE [Concomitant]
  6. MIRALAX [Concomitant]
  7. FENTANYL [Concomitant]
  8. FLEXERIL [Concomitant]
  9. ALPRAZOLAM [Concomitant]
  10. PREVACID [Concomitant]

REACTIONS (1)
  - Extrapyramidal disorder [Unknown]
